FAERS Safety Report 4952382-X (Version None)
Quarter: 2006Q1

REPORT INFORMATION
  Report Type: 
  Country: None (occurrence: None)
  Receive Date: 20060320
  Receipt Date: 20060307
  Transmission Date: 20060701
  Serious: Yes (Other)
  Sender: FDA-Public Use
  Company Number: 2006016695

PATIENT
  Age: 4 Year
  Sex: Female
  Weight: 15.8759 kg

DRUGS (1)
  1. BENADRYL [Suspect]
     Indication: NAUSEA
     Dosage: ONE FASTMELT ONCE, ORAL
     Route: 048
     Dates: start: 20060126, end: 20060126

REACTIONS (5)
  - BODY TEMPERATURE INCREASED [None]
  - CONVULSION [None]
  - LOSS OF CONSCIOUSNESS [None]
  - URINARY TRACT INFECTION [None]
  - VOMITING [None]
